FAERS Safety Report 4283950-9 (Version None)
Quarter: 2004Q1

REPORT INFORMATION
  Report Type: 
  Country: None (occurrence: None)
  Receive Date: 20040202
  Receipt Date: 20001222
  Transmission Date: 20041129
  Serious: Yes (Other)
  Sender: FDA-Public Use
  Company Number: WAES 00121877

PATIENT
  Age: 65 Year
  Sex: Female
  Weight: 86 kg

DRUGS (4)
  1. GLYNASE [Concomitant]
  2. SYNTHROID [Concomitant]
  3. VIOXX [Suspect]
     Indication: OSTEOARTHRITIS
     Route: 048
  4. VIOXX [Suspect]
     Route: 048
     Dates: start: 20000101

REACTIONS (2)
  - DEAFNESS [None]
  - DISEASE RECURRENCE [None]
